FAERS Safety Report 10664016 (Version 2)
Quarter: 2014Q4

REPORT INFORMATION
  Report Type: Report from Study
  Country: CA (occurrence: CA)
  Receive Date: 20141219
  Receipt Date: 20141219
  Transmission Date: 20150529
  Serious: Yes (Other)
  Sender: FDA-Public Use
  Company Number: CA-ABBVIE-14K-028-1317020-00

PATIENT
  Sex: Male

DRUGS (1)
  1. HUMIRA [Suspect]
     Active Substance: ADALIMUMAB
     Indication: CROHN^S DISEASE
     Route: 058
     Dates: start: 20140117, end: 201405

REACTIONS (3)
  - Carpal tunnel syndrome [Unknown]
  - Postoperative wound infection [Unknown]
  - Wound [Unknown]

NARRATIVE: CASE EVENT DATE: 2014
